FAERS Safety Report 6764633-X (Version None)
Quarter: 2010Q2

REPORT INFORMATION
  Report Type: 
  Country: None (occurrence: None)
  Receive Date: 20100610
  Receipt Date: 20100607
  Transmission Date: 20101027
  Serious: Yes (Life-Threatening, Hospitalization)
  Sender: FDA-Public Use
  Company Number: GXKR2010DE06203

PATIENT
  Age: 79 Year
  Sex: Female
  Weight: 69 kg

DRUGS (10)
  1. FALITHROM (NGX) [Interacting]
     Indication: ATRIAL FIBRILLATION
     Dosage: 3 MG, QD
     Route: 048
     Dates: start: 20080401
  2. SIMVASTATIN [Interacting]
     Indication: HYPERLIPIDAEMIA
     Dosage: 20 MG, QD
     Route: 048
     Dates: start: 20000101
  3. DELIX [Suspect]
     Indication: HYPERTENSION
     Dosage: 10 MG, QD
     Route: 048
     Dates: start: 20000101
  4. DELIX [Suspect]
     Dosage: 5 MG, QD
     Route: 048
     Dates: start: 20081212
  5. ALDACTONE [Suspect]
     Indication: RENAL FAILURE CHRONIC
     Dosage: 50 MG, QD
     Route: 048
     Dates: start: 20081001, end: 20081208
  6. ZYLORIC ^FRESENIUS^ [Interacting]
     Indication: HYPERURICAEMIA
     Dosage: 150 MG, QD
     Route: 048
     Dates: start: 20000101
  7. NORVASC [Concomitant]
     Indication: HYPERTENSION
     Dosage: 5 MG, QD
     Route: 048
     Dates: start: 20000101
  8. HYDROMORPHONE HCL [Concomitant]
     Indication: PAIN
     Dosage: 8 MG, QHS
     Route: 048
     Dates: start: 20081124
  9. METOPROLOL SUCCINATE [Concomitant]
     Dosage: 180 MG, QD
     Route: 048
     Dates: start: 20000101, end: 20081208
  10. LACTULOSE [Concomitant]
     Indication: CONSTIPATION
     Dosage: 10 MG, BID
     Route: 048
     Dates: start: 20081001

REACTIONS (2)
  - COAGULOPATHY [None]
  - HYPERKALAEMIA [None]
